FAERS Safety Report 6382129-4 (Version None)
Quarter: 2009Q3

REPORT INFORMATION
  Report Type: 
  Country: None (occurrence: None)
  Receive Date: 20090930
  Receipt Date: 20090922
  Transmission Date: 20100115
  Serious: Yes (Other)
  Sender: FDA-Public Use
  Company Number: PHHY2009BR41333

PATIENT
  Age: 56 Year
  Sex: Female

DRUGS (1)
  1. GALVUS MET [Suspect]
     Indication: DIABETES MELLITUS
     Dosage: 850/50 MG
     Route: 048

REACTIONS (1)
  - RENAL FAILURE [None]
